FAERS Safety Report 25180068 (Version 1)
Quarter: 2025Q2

REPORT INFORMATION
  Report Type: Report from Study
  Country: US (occurrence: US)
  Receive Date: 20250409
  Receipt Date: 20250409
  Transmission Date: 20250717
  Serious: Yes (Death)
  Sender: HELSINN HEALTHCARE
  Company Number: US-HBP-2025US031829

PATIENT
  Sex: Female

DRUGS (1)
  1. VALCHLOR [Suspect]
     Active Substance: MECHLORETHAMINE
     Indication: Cutaneous T-cell lymphoma
     Dosage: THIN FILM, TO AFFECTED AREAS OF THE SKIN ONCE DAILY
     Route: 061
     Dates: start: 20221013

REACTIONS (1)
  - Death [Fatal]
